FAERS Safety Report 7936622-0 (Version None)
Quarter: 2011Q4

REPORT INFORMATION
  Report Type: 
  Country: None (occurrence: None)
  Receive Date: 20111123
  Receipt Date: 20111114
  Transmission Date: 20120403
  Serious: Yes (Hospitalization, Other)
  Sender: FDA-Public Use
  Company Number: US-JNJFOC-20090301195

PATIENT
  Sex: Female
  Weight: 56.7 kg

DRUGS (27)
  1. LEVAQUIN [Suspect]
     Indication: BRONCHITIS
     Route: 065
     Dates: start: 20071201, end: 20071201
  2. LEVAQUIN [Suspect]
     Route: 042
     Dates: start: 20081101, end: 20081101
  3. MEDROL [Concomitant]
     Indication: CHRONIC OBSTRUCTIVE PULMONARY DISEASE
     Route: 065
     Dates: start: 19710101
  4. CRESTOR [Concomitant]
     Indication: BLOOD CHOLESTEROL INCREASED
     Route: 048
     Dates: start: 20110801
  5. VITAMIN D W/VITAMIN E [Concomitant]
     Indication: VITAMIN SUPPLEMENTATION
     Route: 048
  6. LEVAQUIN [Suspect]
     Indication: STATUS ASTHMATICUS
     Route: 042
     Dates: start: 20081101, end: 20081101
  7. LEVAQUIN [Suspect]
     Route: 048
     Dates: start: 20081101, end: 20081201
  8. ALBUTEROL [Concomitant]
     Indication: ASTHMA
     Route: 055
     Dates: start: 19910101
  9. LEVAQUIN [Suspect]
     Route: 042
     Dates: start: 20081212, end: 20081223
  10. KLOR-CON [Concomitant]
     Indication: MINERAL SUPPLEMENTATION
     Route: 048
  11. LEVAQUIN [Suspect]
     Route: 048
     Dates: start: 20080218
  12. AVELOX [Suspect]
     Indication: BRONCHITIS
     Route: 048
     Dates: start: 20081101
  13. AVELOX [Suspect]
     Route: 042
     Dates: start: 20081201, end: 20081201
  14. METHYLPREDNISOLONE [Concomitant]
     Indication: CHRONIC OBSTRUCTIVE PULMONARY DISEASE
     Route: 065
     Dates: start: 19710101
  15. ADVAIR DISKUS 100/50 [Concomitant]
     Indication: ASTHMA
     Route: 065
     Dates: start: 20070101
  16. LEVAQUIN [Suspect]
     Route: 042
     Dates: start: 20081101, end: 20081101
  17. LEVAQUIN [Suspect]
     Indication: PNEUMONIA BACTERIAL
     Route: 048
     Dates: start: 20081212, end: 20081223
  18. AVELOX [Suspect]
     Indication: STATUS ASTHMATICUS
     Route: 042
     Dates: start: 20081201, end: 20081201
  19. SPIRIVA [Concomitant]
     Indication: ASTHMA
     Route: 055
     Dates: start: 20090101
  20. FISH OIL [Concomitant]
     Indication: NUTRITIONAL SUPPORT
     Route: 065
  21. LEVAQUIN [Suspect]
     Indication: PNEUMONIA
     Route: 042
     Dates: start: 20081212, end: 20081223
  22. LEVAQUIN [Suspect]
     Route: 042
     Dates: start: 20081212, end: 20081223
  23. LEVAQUIN [Suspect]
     Route: 048
     Dates: start: 20081212, end: 20081223
  24. LEVAQUIN [Suspect]
     Route: 048
     Dates: start: 20080218
  25. LEVAQUIN [Suspect]
     Route: 048
     Dates: start: 20081212, end: 20081223
  26. LEVAQUIN [Suspect]
     Route: 048
     Dates: start: 20080218
  27. FOLIC ACID [Concomitant]
     Indication: VITAMIN SUPPLEMENTATION
     Route: 048
     Dates: start: 20080101

REACTIONS (7)
  - TENDON RUPTURE [None]
  - BODY HEIGHT DECREASED [None]
  - OEDEMA PERIPHERAL [None]
  - JOINT SWELLING [None]
  - ROTATOR CUFF SYNDROME [None]
  - INAPPROPRIATE SCHEDULE OF DRUG ADMINISTRATION [None]
  - NEURALGIA [None]
